FAERS Safety Report 7486643-X (Version None)
Quarter: 2011Q2

REPORT INFORMATION
  Report Type: 
  Country: None (occurrence: None)
  Receive Date: 20110517
  Receipt Date: 20110505
  Transmission Date: 20111010
  Serious: Yes (Disabling)
  Sender: FDA-Public Use
  Company Number: TR-ELI_LILLY_AND_COMPANY-TR201105002129

PATIENT
  Age: 84 Year
  Sex: Female

DRUGS (2)
  1. ANTIBIOTICS [Concomitant]
     Indication: EYE OPERATION
     Dosage: 2 DF, QD
     Route: 048
  2. FORTEO [Suspect]
     Dosage: 20 UG, QD
     Route: 058
     Dates: start: 20100505

REACTIONS (3)
  - GAIT DISTURBANCE [None]
  - ARTHRALGIA [None]
  - DRUG INEFFECTIVE [None]
